FAERS Safety Report 5240012-1 (Version None)
Quarter: 2007Q1

REPORT INFORMATION
  Report Type: 
  Country: None (occurrence: None)
  Receive Date: 20070216
  Receipt Date: 20070206
  Transmission Date: 20070707
  Serious: Yes (Other)
  Sender: FDA-Public Use
  Company Number: BR-PFIZER INC-2007007426

PATIENT
  Sex: Male

DRUGS (7)
  1. VIAGRA [Suspect]
     Indication: ERECTILE DYSFUNCTION
     Route: 048
  2. HYOSCYAMUS/LOBELIA TINCTURE/POTASSIUM IODIDE [Concomitant]
     Route: 048
  3. AMBROXOL [Concomitant]
  4. CALTRATE + D [Concomitant]
     Route: 048
  5. OS-CAL [Concomitant]
     Route: 048
  6. NUCLEO C.M.P. [Concomitant]
     Route: 048
  7. GLUCOSAMINE W/CHONDROITIN SULFATES [Concomitant]
     Route: 048

REACTIONS (4)
  - EYE OEDEMA [None]
  - EYE PAIN [None]
  - FACE OEDEMA [None]
  - FEELING HOT [None]
